FAERS Safety Report 5332434-5 (Version None)
Quarter: 2007Q2

REPORT INFORMATION
  Report Type: 
  Country: None (occurrence: None)
  Receive Date: 20070523
  Receipt Date: 20070514
  Transmission Date: 20071010
  Serious: Yes (Hospitalization)
  Sender: FDA-Public Use
  Company Number: GB-JNJFOC-20070503999

PATIENT
  Age: 57 Year
  Sex: Female

DRUGS (4)
  1. DURAGESIC-50 [Suspect]
     Route: 062
  2. DURAGESIC-50 [Suspect]
     Route: 062
  3. DURAGESIC-50 [Suspect]
     Indication: ARTHRITIS
     Route: 062
  4. TRAMADOL HCL [Concomitant]
     Route: 065

REACTIONS (6)
  - ANXIETY [None]
  - CEREBROVASCULAR ACCIDENT [None]
  - CHEST PAIN [None]
  - DISTURBANCE IN SOCIAL BEHAVIOUR [None]
  - INCOHERENT [None]
  - INSOMNIA [None]
